FAERS Safety Report 22225861 (Version 1)
Quarter: 2023Q2

REPORT INFORMATION
  Report Type: Other
  Country: AU (occurrence: AU)
  Receive Date: 20230419
  Receipt Date: 20230419
  Transmission Date: 20230722
  Serious: Yes (Other)
  Sender: FDA-Public Use
  Company Number: AU-CELLTRION INC.-2023AU007896

PATIENT

DRUGS (11)
  1. RITUXIMAB [Suspect]
     Active Substance: RITUXIMAB
     Indication: Product use in unapproved indication
  2. AZATHIOPRINE [Suspect]
     Active Substance: AZATHIOPRINE
     Indication: Product use in unapproved indication
  3. AZITHROMYCIN [Suspect]
     Active Substance: AZITHROMYCIN
     Indication: Product use in unapproved indication
  4. IBRUTINIB [Suspect]
     Active Substance: IBRUTINIB
     Indication: Product use in unapproved indication
     Dosage: UNK
  5. IMATINIB [Suspect]
     Active Substance: IMATINIB
     Indication: Product use in unapproved indication
  6. METHOTREXATE [Suspect]
     Active Substance: METHOTREXATE
     Indication: Product use in unapproved indication
     Dosage: UNK
  7. MONTELUKAST [Suspect]
     Active Substance: MONTELUKAST SODIUM
     Indication: Product use in unapproved indication
  8. MYCOPHENOLATE MOFETIL [Suspect]
     Active Substance: MYCOPHENOLATE MOFETIL
     Indication: Product use in unapproved indication
  9. PREDNISONE [Suspect]
     Active Substance: PREDNISONE
     Indication: Product use in unapproved indication
  10. RUXOLITINIB [Suspect]
     Active Substance: RUXOLITINIB
     Indication: Product use in unapproved indication
  11. TACROLIMUS [Suspect]
     Active Substance: TACROLIMUS
     Indication: Product used for unknown indication

REACTIONS (5)
  - Chronic graft versus host disease [Unknown]
  - Scleroderma [Unknown]
  - Condition aggravated [Unknown]
  - Respiratory disorder [Unknown]
  - Drug ineffective [Unknown]
